FAERS Safety Report 8504030-X (Version None)
Quarter: 2012Q3

REPORT INFORMATION
  Report Type: 
  Country: None (occurrence: None)
  Receive Date: 20120711
  Receipt Date: 20120705
  Transmission Date: 20120928
  Serious: Yes (Other)
  Sender: FDA-Public Use
  Company Number: TR-ELI_LILLY_AND_COMPANY-TR201201002182

PATIENT
  Sex: Female
  Weight: 80 kg

DRUGS (5)
  1. HUMALOG [Suspect]
     Dosage: UNK, UNKNOWN
  2. LEVOTHYROXINE SODIUM [Concomitant]
     Indication: THYROID DISORDER
     Dosage: 100 MG, QD
     Route: 048
     Dates: start: 20110101
  3. HUMALOG [Suspect]
     Indication: DIABETES MELLITUS
     Dosage: 4 IU, UNK
     Dates: start: 20020101
  4. LANTUS [Concomitant]
     Indication: DIABETES MELLITUS
     Dosage: UNK, QD
     Route: 058
     Dates: start: 20070101
  5. DIOVAN [Concomitant]
     Indication: TENSION
     Dosage: 80 MG, QD
     Route: 048
     Dates: start: 20070101

REACTIONS (4)
  - SCAR [None]
  - BLOOD GLUCOSE ABNORMAL [None]
  - RENAL FAILURE [None]
  - DRUG INEFFECTIVE [None]
